FAERS Safety Report 5839839-4 (Version None)
Quarter: 2008Q3

REPORT INFORMATION
  Report Type: 
  Country: None (occurrence: None)
  Receive Date: 20080807
  Receipt Date: 20080723
  Transmission Date: 20090109
  Serious: Yes (Death)
  Sender: FDA-Public Use
  Company Number: 2008S1013360

PATIENT
  Sex: Male

DRUGS (1)
  1. FENTANYL TRANSDERMAL SYSTEM [Suspect]
     Indication: PAIN
     Dosage: 50 UG; HR; TRANSDERMAL
     Route: 062
     Dates: start: 20060403, end: 20060404

REACTIONS (1)
  - THERAPEUTIC AGENT TOXICITY [None]
